FAERS Safety Report 11167485 (Version 2)
Quarter: 2015Q3

REPORT INFORMATION
  Report Type: Spontaneous
  Country: SI (occurrence: SI)
  Receive Date: 20150605
  Receipt Date: 20150701
  Transmission Date: 20151125
  Serious: Yes (Hospitalization, Other)
  Sender: FDA-Public Use
  Company Number: SI-SA-2015SA076121

PATIENT
  Age: 81 Year
  Sex: Male
  Weight: 85 kg

DRUGS (9)
  1. EDEMID [Concomitant]
     Dates: start: 201506
  2. ZEMPLAR [Concomitant]
     Active Substance: PARICALCITOL
     Dates: start: 201403
  3. HELEX [Concomitant]
     Active Substance: ALPRAZOLAM
     Dates: start: 201506
  4. CRESTOR [Concomitant]
     Active Substance: ROSUVASTATIN CALCIUM
  5. SOBYCOR [Concomitant]
     Dates: start: 201506
  6. TANYZ [Concomitant]
     Dates: start: 2014
  7. FABRAZYME [Suspect]
     Active Substance: AGALSIDASE BETA
     Indication: FABRY^S DISEASE
     Route: 042
     Dates: start: 20130308
  8. NEPHROTRANS [Concomitant]
     Dates: start: 201506
  9. MAREVAN [Concomitant]
     Active Substance: WARFARIN SODIUM
     Dates: start: 201310

REACTIONS (8)
  - Blood creatinine increased [Recovering/Resolving]
  - Cardiac output decreased [Recovering/Resolving]
  - Cardiac disorder [Recovering/Resolving]
  - Renal impairment [Recovering/Resolving]
  - Cardiac failure acute [Recovered/Resolved]
  - Cardiac failure congestive [Recovering/Resolving]
  - Systolic dysfunction [Recovering/Resolving]
  - Ejection fraction decreased [Recovering/Resolving]

NARRATIVE: CASE EVENT DATE: 20150524
